FAERS Safety Report 4998595-2 (Version None)
Quarter: 2006Q2

REPORT INFORMATION
  Report Type: 
  Country: None (occurrence: None)
  Receive Date: 20060509
  Receipt Date: 20060427
  Transmission Date: 20061013
  Serious: No
  Sender: FDA-Public Use
  Company Number: 06H-009-0307958-00

PATIENT
  Age: 83 Year
  Sex: Male

DRUGS (7)
  1. NOREPINEPHRINE  INJECTION (NOREPINEPHRINE BITARTRATE INJECTION) (NOREP [Suspect]
     Indication: BLOOD PRESSURE MANAGEMENT
     Dosage: 0.1 UG/KG BW/MIN; UNKNOWN; INFUSION (SEE IMAGE)
     Route: 011
  2. COLLOID [Concomitant]
  3. PHENYLEPHRINE [Concomitant]
  4. MILRINONE [Concomitant]
  5. HEPARIN [Concomitant]
  6. HYDROXYETHYL STARCH (HYDROXYETHYLCELLULOSE) [Concomitant]
  7. GELATINE (GELATIN) [Concomitant]

REACTIONS (9)
  - BLOOD LACTATE DEHYDROGENASE INCREASED [None]
  - BLOOD LACTIC ACID INCREASED [None]
  - CARDIAC FAILURE [None]
  - HEPATIC ENZYME INCREASED [None]
  - INTESTINAL ISCHAEMIA [None]
  - MULTI-ORGAN DISORDER [None]
  - POST PROCEDURAL COMPLICATION [None]
  - POSTOPERATIVE WOUND INFECTION [None]
  - VASOSPASM [None]
